FAERS Safety Report 11805769 (Version 1)
Quarter: 2015Q4

REPORT INFORMATION
  Report Type: Spontaneous
  Country: US (occurrence: US)
  Receive Date: 20151207
  Receipt Date: 20151207
  Transmission Date: 20160305
  Serious: Yes (Other)
  Sender: FDA-Public Use
  Company Number: US-BEH-2015056352

PATIENT
  Sex: Female
  Weight: 73 kg

DRUGS (33)
  1. HIZENTRA [Suspect]
     Active Substance: HUMAN IMMUNOGLOBULIN G
     Indication: IMMUNODEFICIENCY COMMON VARIABLE
     Route: 058
  2. PHENTERMINE. [Concomitant]
     Active Substance: PHENTERMINE
  3. PROVENTIL HFA [Concomitant]
     Active Substance: ALBUTEROL SULFATE
  4. CALCIUM+D [Concomitant]
  5. DIPHENHYDRAMINE. [Concomitant]
     Active Substance: DIPHENHYDRAMINE
  6. CYANOCOBALAMIN. [Concomitant]
     Active Substance: CYANOCOBALAMIN
  7. ZOFRAN [Concomitant]
     Active Substance: ONDANSETRON HYDROCHLORIDE
  8. CLARITIN [Concomitant]
     Active Substance: LORATADINE
  9. DULCOLAX NOS [Concomitant]
     Active Substance: BISACODYL OR DOCUSATE SODIUM
  10. PREDNISONE. [Concomitant]
     Active Substance: PREDNISONE
  11. FEXOFENADINE [Concomitant]
     Active Substance: FEXOFENADINE\FEXOFENADINE HYDROCHLORIDE
  12. CRANBERRY. [Concomitant]
     Active Substance: CRANBERRY
  13. ADVAIR HFA [Concomitant]
     Active Substance: FLUTICASONE PROPIONATE\SALMETEROL XINAFOATE
  14. MUCINEX D [Concomitant]
     Active Substance: GUAIFENESIN\PSEUDOEPHEDRINE HYDROCHLORIDE
  15. AUGMENTIN [Concomitant]
     Active Substance: AMOXICILLIN\CLAVULANATE POTASSIUM
  16. EPIPEN [Concomitant]
     Active Substance: EPINEPHRINE
  17. ACETAMINOPHEN. [Concomitant]
     Active Substance: ACETAMINOPHEN
  18. ASTEPRO [Concomitant]
     Active Substance: AZELASTINE HYDROCHLORIDE
  19. METRONIDAZOLE. [Concomitant]
     Active Substance: METRONIDAZOLE
  20. DAILY MULTIVITAMIN [Concomitant]
     Active Substance: VITAMINS
  21. LIDOCAINE/PRILOCAINE [Concomitant]
  22. METOPROLOL [Concomitant]
     Active Substance: METOPROLOL
  23. ZYRTEC [Concomitant]
     Active Substance: CETIRIZINE HYDROCHLORIDE
  24. FLONASE [Concomitant]
     Active Substance: FLUTICASONE PROPIONATE
  25. LEVAQUIN [Concomitant]
     Active Substance: LEVOFLOXACIN
  26. FIORICET [Concomitant]
     Active Substance: ACETAMINOPHEN\BUTALBITAL\CAFFEINE
  27. GLUCOSAMINE [Concomitant]
     Active Substance: GLUCOSAMINE
  28. ACIDOPHILUS [Concomitant]
     Active Substance: LACTOBACILLUS ACIDOPHILUS
  29. LIPITOR [Concomitant]
     Active Substance: ATORVASTATIN CALCIUM
  30. XOLAIR [Concomitant]
     Active Substance: OMALIZUMAB
  31. GARLIC. [Concomitant]
     Active Substance: GARLIC
  32. FISH OIL [Concomitant]
     Active Substance: FISH OIL
  33. LUNESTA [Concomitant]
     Active Substance: ESZOPICLONE

REACTIONS (1)
  - Meningitis bacterial [Unknown]
